FAERS Safety Report 21519814 (Version 4)
Quarter: 2022Q4

REPORT INFORMATION
  Report Type: Spontaneous
  Country: US (occurrence: US)
  Receive Date: 20221028
  Receipt Date: 20221222
  Transmission Date: 20230112
  Serious: Yes (Other)
  Sender: FDA-Public Use
  Company Number: US-PFIZER INC-202201204588

PATIENT
  Age: 5 Year
  Sex: Female
  Weight: 24.26 kg

DRUGS (1)
  1. SOMATROPIN [Suspect]
     Active Substance: SOMATROPIN
     Indication: Growth hormone deficiency
     Dosage: UNK

REACTIONS (4)
  - Poor quality device used [Unknown]
  - Device breakage [Unknown]
  - Intentional device misuse [Unknown]
  - Off label use [Unknown]

NARRATIVE: CASE EVENT DATE: 20170901
